FAERS Safety Report 12687953 (Version 2)
Quarter: 2016Q4

REPORT INFORMATION
  Report Type: Spontaneous
  Country: US (occurrence: US)
  Receive Date: 20160826
  Receipt Date: 20161006
  Transmission Date: 20170207
  Serious: Yes (Other)
  Sender: FDA-Public Use
  Company Number: US-WEST-WARD PHARMACEUTICALS CORP.-US-H14001-16-01650

PATIENT
  Age: 80 Year
  Sex: Male

DRUGS (2)
  1. STEROIDS [Suspect]
     Active Substance: UNSPECIFIED INGREDIENT
     Indication: CONTRAST MEDIA ALLERGY
     Route: 042
  2. DEXAMETHASONE. [Suspect]
     Active Substance: DEXAMETHASONE
     Indication: EVIDENCE BASED TREATMENT
     Route: 042

REACTIONS (3)
  - Vocal cord paralysis [Recovered/Resolved]
  - Herpes simplex [Recovered/Resolved]
  - Respiratory distress [Recovered/Resolved]
